FAERS Safety Report 19204025 (Version 1)
Quarter: 2021Q2

REPORT INFORMATION
  Report Type: Spontaneous
  Country: CN (occurrence: CN)
  Receive Date: 20210503
  Receipt Date: 20210503
  Transmission Date: 20210717
  Serious: Yes (Other)
  Sender: FDA-Public Use
  Company Number: CN-009507513-2104CHN008168

PATIENT
  Age: 63 Year
  Sex: Male

DRUGS (2)
  1. TIENAM [Suspect]
     Active Substance: CILASTATIN SODIUM\IMIPENEM
     Indication: KLEBSIELLA INFECTION
     Dosage: 1 G, Q8H (ALSO REPORTED AS 3 TIMES A DAY)
     Route: 041
     Dates: start: 20210316, end: 20210319
  2. SODIUM CHLORIDE. [Concomitant]
     Active Substance: SODIUM CHLORIDE
     Indication: MEDICATION DILUTION
     Dosage: 200 ML, Q8H (ALSO REPORTED AS 3 TIMES A DAY)
     Route: 041
     Dates: start: 20210316, end: 20210319

REACTIONS (1)
  - Delirium [Recovering/Resolving]

NARRATIVE: CASE EVENT DATE: 20210319
